FAERS Safety Report 8097719-0 (Version None)
Quarter: 2012Q1

REPORT INFORMATION
  Report Type: 
  Country: None (occurrence: None)
  Receive Date: 20120128
  Receipt Date: 20110714
  Transmission Date: 20120608
  Serious: No
  Sender: FDA-Public Use
  Company Number: US-ABBOTT-11P-163-0839848-00

PATIENT
  Sex: Female
  Weight: 90.8 kg

DRUGS (5)
  1. HUMIRA [Suspect]
     Indication: ANKYLOSING SPONDYLITIS
     Dates: start: 20110501
  2. FOLIC ACID [Concomitant]
     Indication: ANKYLOSING SPONDYLITIS
  3. METHOTREXATE [Concomitant]
     Indication: ANKYLOSING SPONDYLITIS
  4. PREDNISONE TAB [Concomitant]
     Indication: ANKYLOSING SPONDYLITIS
  5. LISINOPRIL [Concomitant]
     Indication: HYPERTENSION

REACTIONS (4)
  - NASOPHARYNGITIS [None]
  - COUGH [None]
  - WRONG TECHNIQUE IN DRUG USAGE PROCESS [None]
  - THROAT IRRITATION [None]
